FAERS Safety Report 11446816 (Version 1)
Quarter: 2015Q3

REPORT INFORMATION
  Report Type: Report from Study
  Country: CA (occurrence: CA)
  Receive Date: 20150902
  Receipt Date: 20150902
  Transmission Date: 20151125
  Serious: Yes (Other)
  Sender: FDA-Public Use
  Company Number: CA-BRISTOL-MYERS SQUIBB COMPANY-BMS-2015-053309

PATIENT
  Age: 68 Year
  Sex: Female

DRUGS (1)
  1. ABATACEPT [Suspect]
     Active Substance: ABATACEPT
     Indication: RHEUMATOID ARTHRITIS
     Dosage: 750 MG, Q4WK
     Route: 042
     Dates: start: 20150416

REACTIONS (6)
  - Oral herpes [Unknown]
  - Swelling [Recovering/Resolving]
  - Aphthous ulcer [Recovering/Resolving]
  - Fatigue [Unknown]
  - Oropharyngeal pain [Recovering/Resolving]
  - Myxoedema [Unknown]

NARRATIVE: CASE EVENT DATE: 20150716
